FAERS Safety Report 25975899 (Version 1)
Quarter: 2025Q4

REPORT INFORMATION
  Report Type: Spontaneous
  Country: CN (occurrence: CN)
  Receive Date: 20251029
  Receipt Date: 20251029
  Transmission Date: 20260117
  Serious: Yes (Hospitalization, Other)
  Sender: AMGEN
  Company Number: CN-AMGEN-CHNSP2025210796

PATIENT
  Age: 67 Year
  Sex: Male
  Weight: 69 kg

DRUGS (3)
  1. CARFILZOMIB [Suspect]
     Active Substance: CARFILZOMIB
     Indication: Plasma cell myeloma
     Dosage: 35 MILLIGRAM, QWK, D2-3
     Route: 040
     Dates: start: 20251001, end: 20251002
  2. DARATUMUMAB [Suspect]
     Active Substance: DARATUMUMAB
     Indication: Plasma cell myeloma
     Dosage: 1.2 GRAM, QWK, D1
     Route: 040
     Dates: start: 20250930, end: 20250930
  3. DARATUMUMAB [Suspect]
     Active Substance: DARATUMUMAB
     Dosage: 0.1 GRAM, QWK
     Route: 040
     Dates: start: 20250930, end: 20250930

REACTIONS (1)
  - Myelosuppression [Not Recovered/Not Resolved]

NARRATIVE: CASE EVENT DATE: 20251008
